FAERS Safety Report 4741267-X (Version None)
Quarter: 2005Q3

REPORT INFORMATION
  Report Type: 
  Country: None (occurrence: None)
  Receive Date: 20050808
  Receipt Date: 20050728
  Transmission Date: 20060218
  Serious: Yes (Hospitalization, Other)
  Sender: FDA-Public Use
  Company Number: 2005097678

PATIENT
  Age: 65 Year
  Sex: Male
  Weight: 105.6881 kg

DRUGS (8)
  1. NORVASC [Suspect]
     Indication: HYPERTENSION
     Dosage: 10 MG (10 MG, DAILY INTERVAL: EVERY DAY), ORAL
     Route: 048
     Dates: start: 20040101
  2. LIPITOR [Suspect]
     Indication: BLOOD CHOLESTEROL INCREASED
     Dosage: 20 MG (20 MG, DAILY INTERVAL: EVERY DAY), ORAL
     Route: 048
     Dates: start: 20040101
  3. ALTACE [Concomitant]
  4. BUMEX [Concomitant]
  5. COREG [Concomitant]
  6. FLOMAX [Concomitant]
  7. LANTUS [Concomitant]
  8. HUMULIN R [Concomitant]

REACTIONS (3)
  - MYOCARDIAL INFARCTION [None]
  - OEDEMA [None]
  - PAIN IN EXTREMITY [None]
